FAERS Safety Report 7220750-1 (Version None)
Quarter: 2011Q1

REPORT INFORMATION
  Report Type: 
  Country: None (occurrence: None)
  Receive Date: 20110111
  Receipt Date: 20110103
  Transmission Date: 20110831
  Serious: Yes (Hospitalization)
  Sender: FDA-Public Use
  Company Number: FR-PFIZER INC-2011000138

PATIENT
  Age: 44 Year
  Sex: Male

DRUGS (7)
  1. XANAX [Suspect]
     Dosage: 0.25 MG, 1X/DAY
     Route: 048
     Dates: start: 20101030, end: 20101130
  2. AMOXICILLIN [Suspect]
     Dosage: 3 G, 4X/DAY
     Route: 042
     Dates: start: 20101103, end: 20101130
  3. DUPHALAC [Suspect]
     Dosage: UNK
     Route: 048
     Dates: start: 20101103, end: 20101130
  4. MYOLASTAN [Suspect]
     Dosage: UNK
     Route: 048
     Dates: start: 20101108, end: 20101130
  5. PREVISCAN [Suspect]
     Dosage: 20 MG, 1X/DAY
     Route: 048
     Dates: start: 20101103, end: 20101119
  6. DOMPERIDONE [Suspect]
     Dosage: 10 MG, 1X/DAY
     Route: 048
     Dates: start: 20101119, end: 20101129
  7. PREVISCAN [Suspect]
     Dosage: 20 MG, 1X/DAY
     Route: 048
     Dates: start: 20101123, end: 20101130

REACTIONS (3)
  - RASH PUSTULAR [None]
  - RASH MACULO-PAPULAR [None]
  - PRURITUS [None]
